FAERS Safety Report 14708020 (Version 5)
Quarter: 2018Q2

REPORT INFORMATION
  Report Type: Spontaneous
  Country: US (occurrence: US)
  Receive Date: 20180403
  Receipt Date: 20180622
  Transmission Date: 20180711
  Serious: No
  Sender: FDA-Public Use
  Company Number: US-PFIZER INC-2018132404

PATIENT
  Age: 19 Year
  Sex: Male
  Weight: 52.62 kg

DRUGS (1)
  1. GENOTROPIN [Suspect]
     Active Substance: SOMATROPIN
     Indication: GROWTH HORMONE DEFICIENCY
     Dosage: 1.8 MG, DAILY

REACTIONS (4)
  - Abnormal behaviour [Unknown]
  - Device issue [Unknown]
  - Poor quality device used [Unknown]
  - Headache [Unknown]

NARRATIVE: CASE EVENT DATE: 201803
